FAERS Safety Report 14469984 (Version 1)
Quarter: 2018Q1

REPORT INFORMATION
  Report Type: Spontaneous
  Country: GB (occurrence: GB)
  Receive Date: 20180131
  Receipt Date: 20180131
  Transmission Date: 20180509
  Serious: Yes (Life-Threatening, Other)
  Sender: FDA-Public Use
  Company Number: GB-MYLANLABS-2018M1005553

PATIENT
  Age: 40 Year
  Sex: Female

DRUGS (2)
  1. TENOFOVIR [Suspect]
     Active Substance: TENOFOVIR
     Indication: HIV INFECTION
     Dosage: UNK
  2. NEXPLANON [Suspect]
     Active Substance: ETONOGESTREL
     Indication: CONTRACEPTION
     Dosage: 1 IMPLANT, UNK
     Route: 059

REACTIONS (8)
  - Labelled drug-drug interaction medication error [Unknown]
  - Unintended pregnancy [Recovered/Resolved]
  - Drug prescribing error [Unknown]
  - Pregnancy with implant contraceptive [Recovered/Resolved]
  - Internal haemorrhage [Unknown]
  - Ectopic pregnancy with contraceptive device [Recovered/Resolved]
  - Immunodeficiency [Unknown]
  - Maternal exposure during pregnancy [Recovered/Resolved]

NARRATIVE: CASE EVENT DATE: 201601
